FAERS Safety Report 17271900 (Version 1)
Quarter: 2020Q1

REPORT INFORMATION
  Report Type: Spontaneous
  Country: US (occurrence: US)
  Receive Date: 20200113
  Receipt Date: 20200113
  Transmission Date: 20200409
  Serious: Yes (Hospitalization)
  Sender: FDA-Public Use
  Company Number: None

PATIENT
  Age: 75 Year
  Sex: Male
  Weight: 78 kg

DRUGS (9)
  1. HEPARIN/D5W 25,000 UNITS/250 ML [Suspect]
     Active Substance: DEXTROSE\HEPARIN SODIUM
     Indication: CARDIAC ABLATION
     Route: 042
     Dates: start: 20200110, end: 20200110
  2. HEPARIN SODIUM INJECTION 10,000 UNITS/10ML VIAL [Suspect]
     Active Substance: HEPARIN SODIUM
     Indication: CARDIAC ABLATION
     Route: 042
     Dates: start: 20200110, end: 20200110
  3. AMIODARONE [Concomitant]
     Active Substance: AMIODARONE
  4. PRPOFOL [Concomitant]
  5. ROCURONIUM [Concomitant]
     Active Substance: ROCURONIUM BROMIDE
  6. LACTATED RINGERS SOLUTION [Concomitant]
     Active Substance: CALCIUM CHLORIDE\POTASSIUM CHLORIDE\SODIUM CHLORIDE\SODIUM LACTATE
  7. HEPARIN SODIUM INJECTION 10,000 UNITS/10ML VIAL [Suspect]
     Active Substance: HEPARIN SODIUM
     Indication: ANTICOAGULANT THERAPY
     Route: 042
     Dates: start: 20200110, end: 20200110
  8. NS [Concomitant]
     Active Substance: SODIUM CHLORIDE
  9. HEPARIN/D5W 25,000 UNITS/250 ML [Suspect]
     Active Substance: DEXTROSE\HEPARIN SODIUM
     Indication: ANTICOAGULANT THERAPY
     Route: 042
     Dates: start: 20200110, end: 20200110

REACTIONS (3)
  - Coagulation time [None]
  - Coagulation time shortened [None]
  - Therapeutic product effect decreased [None]

NARRATIVE: CASE EVENT DATE: 20200110
